FAERS Safety Report 18050185 (Version 1)
Quarter: 2020Q3

REPORT INFORMATION
  Report Type: Spontaneous
  Country: NL (occurrence: NL)
  Receive Date: 20200721
  Receipt Date: 20200721
  Transmission Date: 20201103
  Serious: Yes (Life-Threatening)
  Sender: FDA-Public Use
  Company Number: NL-PFIZER INC-2020274692

PATIENT
  Sex: Female
  Weight: 60 kg

DRUGS (2)
  1. SUFENTA [Suspect]
     Active Substance: SUFENTANIL CITRATE
     Indication: ANALGESIC THERAPY
     Dosage: UNK, SINGLE
     Route: 065
     Dates: start: 2020, end: 2020
  2. LINEZOLID. [Suspect]
     Active Substance: LINEZOLID
     Indication: INFECTION
     Dosage: 1200 MG, 1X/DAY
     Route: 065
     Dates: start: 2020, end: 2020

REACTIONS (4)
  - Product use issue [Unknown]
  - Haemodynamic instability [Recovered/Resolved]
  - Off label use [Unknown]
  - Hyperthermia [Recovered/Resolved]
